FAERS Safety Report 6240452-8 (Version None)
Quarter: 2009Q2

REPORT INFORMATION
  Report Type: 
  Country: None (occurrence: None)
  Receive Date: 20090617
  Receipt Date: 20080128
  Transmission Date: 20091009
  Serious: No
  Sender: FDA-Public Use
  Company Number: 271637

PATIENT
  Age: 55 Year
  Sex: Male

DRUGS (2)
  1. NOVOLOG [Suspect]
     Indication: INSULIN-REQUIRING TYPE 2 DIABETES MELLITUS
     Dosage: 8 IU, QD, SUBCUTANEOUS
     Route: 058
     Dates: start: 20070901
  2. LEVEMIR [Suspect]
     Indication: INSULIN-REQUIRING TYPE 2 DIABETES MELLITUS
     Dosage: 2 LU, QD, SUBCUTANEOUS
     Route: 058
     Dates: start: 20070601

REACTIONS (1)
  - BLOOD GLUCOSE FLUCTUATION [None]
